FAERS Safety Report 8834189 (Version 2)
Quarter: 2013Q1

REPORT INFORMATION
  Report Type: Spontaneous
  Country: US (occurrence: US)
  Receive Date: 20121010
  Receipt Date: 20130111
  Transmission Date: 20140127
  Serious: No
  Sender: FDA-Public Use
  Company Number: US-B.I. PHARMACEUTICALS,INC./RIDGEFIELD-2012-BP-23813BP

PATIENT
  Age: 88 None
  Sex: Male
  Weight: 73 kg

DRUGS (8)
  1. PRADAXA [Suspect]
     Indication: MITRAL VALVE STENOSIS
     Dosage: 300 MG
     Route: 048
     Dates: start: 20110930
  2. PRADAXA [Suspect]
     Indication: ATRIAL FIBRILLATION
  3. MULTIVITAMIN [Concomitant]
     Route: 048
     Dates: start: 2007
  4. FISH OIL [Concomitant]
     Dosage: 2000 MG
     Route: 048
     Dates: start: 2007
  5. FLAX SEED [Concomitant]
     Route: 048
  6. ENALAPRIL [Concomitant]
     Indication: HYPERTENSION
     Dosage: 20 MG
     Route: 048
     Dates: start: 1950
  7. HYDROCHLOROTHIAZIDE [Concomitant]
     Dosage: 25 MG
     Route: 048
     Dates: start: 1995
  8. VITAMIN D 3 [Concomitant]
     Indication: VITAMIN SUPPLEMENTATION
     Dosage: 2000 U
     Route: 048
     Dates: start: 2010

REACTIONS (2)
  - Eructation [Recovered/Resolved]
  - Muscular weakness [Unknown]
